FAERS Safety Report 7812182-X (Version None)
Quarter: 2011Q4

REPORT INFORMATION
  Report Type: 
  Country: None (occurrence: None)
  Receive Date: 20111013
  Receipt Date: 20111007
  Transmission Date: 20120403
  Serious: Yes (Hospitalization)
  Sender: FDA-Public Use
  Company Number: US-B.I. PHARMACEUTICALS,INC./RIDGEFIELD-2011-BP-21748BP

PATIENT
  Age: 75 Year
  Sex: Female
  Weight: 60.78 kg

DRUGS (4)
  1. PREVACID [Concomitant]
     Dosage: 30 MG
  2. ASPIRIN [Concomitant]
     Dosage: 81 MG
  3. PRADAXA [Suspect]
     Indication: ATRIAL FIBRILLATION
     Dosage: 300 MG
     Route: 048
     Dates: start: 20110501, end: 20110902
  4. AMIODARONE HCL [Concomitant]
     Dosage: 200 MG

REACTIONS (4)
  - OESOPHAGITIS [None]
  - GASTRITIS [None]
  - GASTROINTESTINAL HAEMORRHAGE [None]
  - DUODENITIS [None]
